FAERS Safety Report 17524796 (Version 1)
Quarter: 2020Q1

REPORT INFORMATION
  Report Type: Spontaneous
  Country: CA (occurrence: CA)
  Receive Date: 20200310
  Receipt Date: 20200310
  Transmission Date: 20200409
  Serious: Yes (Other)
  Sender: FDA-Public Use
  Company Number: CA-JNJFOC-20200302027

PATIENT
  Sex: Female

DRUGS (3)
  1. PLAQUENIL                          /00072602/ [Concomitant]
     Active Substance: HYDROXYCHLOROQUINE DIPHOSPHATE
  2. SULFASALAZINE. [Concomitant]
     Active Substance: SULFASALAZINE
  3. SIMPONI [Suspect]
     Active Substance: GOLIMUMAB
     Indication: RHEUMATOID ARTHRITIS
     Dosage: THE PATIENT WAS ON SIMPONI 2 OR 3 YEARS AGO, FOR 1 MONTH
     Route: 058

REACTIONS (1)
  - Pneumonia [Unknown]
